FAERS Safety Report 7224949-X (Version None)
Quarter: 2011Q1

REPORT INFORMATION
  Report Type: 
  Country: None (occurrence: None)
  Receive Date: 20110113
  Receipt Date: 20110103
  Transmission Date: 20110831
  Serious: Yes (Life-Threatening, Hospitalization)
  Sender: FDA-Public Use
  Company Number: DE-ROCHE-743409

PATIENT
  Sex: Male
  Weight: 100 kg

DRUGS (17)
  1. METHOTREXAT [Suspect]
     Route: 048
  2. RAMIPRIL [Concomitant]
  3. ZOFRAN [Concomitant]
  4. TOCILIZUMAB [Suspect]
     Dosage: GIVEN ON 19 JUL 2010 AND 28 SEP 2010
     Route: 042
     Dates: start: 20100719, end: 20100928
  5. METHOTREXAT [Suspect]
     Indication: RHEUMATOID ARTHRITIS
     Dosage: S.C. GIVEN SINCE JAN 2009, FOLLOWED BY ORAL AT 10 MG SINCE APR 2010
     Route: 048
     Dates: start: 20090101, end: 20100610
  6. SIMVASTATIN [Concomitant]
  7. PALLADONE [Concomitant]
  8. MOVICOL [Concomitant]
  9. TOCILIZUMAB [Suspect]
     Indication: RHEUMATOID ARTHRITIS
     Dosage: FIRST APPLICATION WAS GIVEN AT 480 MG, ALL THE FOLLOWING ONES AT 800 MG
     Route: 042
     Dates: start: 20091015, end: 20100416
  10. PREDNISOLONE [Suspect]
     Indication: RHEUMATOID ARTHRITIS
     Route: 048
  11. PREDNISOLONE [Suspect]
     Route: 048
  12. PANTOZOL [Concomitant]
  13. HYDROXYCHLOROQUINE [Suspect]
     Indication: RHEUMATOID ARTHRITIS
     Route: 048
  14. MARCUMAR [Concomitant]
     Indication: DEEP VEIN THROMBOSIS
     Dates: start: 20080201, end: 20100216
  15. AMARYL [Concomitant]
  16. BISOHEXAL [Concomitant]
  17. ASPIRIN [Concomitant]

REACTIONS (4)
  - ILEUS [None]
  - GASTROINTESTINAL NECROSIS [None]
  - ABDOMINAL WOUND DEHISCENCE [None]
  - IMPAIRED HEALING [None]
